FAERS Safety Report 4889573-2 (Version None)
Quarter: 2006Q1

REPORT INFORMATION
  Report Type: 
  Country: None (occurrence: None)
  Receive Date: 20060120
  Receipt Date: 20060106
  Transmission Date: 20060701
  Serious: Yes (Disabling)
  Sender: FDA-Public Use
  Company Number: 2005S1011405

PATIENT
  Age: 75 Year
  Sex: Male

DRUGS (6)
  1. CARBIDOPA AND LEVODOPA [Suspect]
     Indication: PARKINSON'S DISEASE
     Dosage: 25 MG;BID;ORAL
     Route: 048
     Dates: start: 20051110, end: 20051129
  2. LISINOPRIL [Concomitant]
  3. METFORMIN [Concomitant]
  4. GEMFIBROZIL [Concomitant]
  5. ESOMEPRAZOLE MAGNESIUM [Concomitant]
  6. FLUOXETINE [Concomitant]

REACTIONS (3)
  - BALANCE DISORDER [None]
  - DIZZINESS [None]
  - DYSARTHRIA [None]
